FAERS Safety Report 8415638-4 (Version None)
Quarter: 2012Q2

REPORT INFORMATION
  Report Type: 
  Country: None (occurrence: None)
  Receive Date: 20120530
  Receipt Date: 20120515
  Transmission Date: 20120825
  Serious: Yes (Other)
  Sender: FDA-Public Use
  Company Number: 2012P1026252

PATIENT
  Age: 69 Year
  Sex: Female

DRUGS (20)
  1. INSULIN (GLARGINE) [Concomitant]
  2. VITAMIN D [Concomitant]
  3. BENAZEPRIL HYDROCHLORIDE [Concomitant]
  4. LEVOTHYROXINE SODIUM [Concomitant]
  5. WARFARIN SODIUM [Suspect]
     Dosage: 2.5 MG;QD; 2 MG;QD; 17 MG;QW; 2.5 MG;QD;
     Dates: start: 20091123, end: 20091203
  6. WARFARIN SODIUM [Suspect]
     Dosage: 2.5 MG;QD; 2 MG;QD; 17 MG;QW; 2.5 MG;QD;
     Dates: start: 20080201, end: 20091001
  7. WARFARIN SODIUM [Suspect]
     Dosage: 2.5 MG;QD; 2 MG;QD; 17 MG;QW; 2.5 MG;QD;
     Dates: start: 20091204, end: 20091209
  8. WARFARIN SODIUM [Suspect]
     Dosage: 2.5 MG;QD; 2 MG;QD; 17 MG;QW; 2.5 MG;QD;
     Dates: start: 20091210
  9. ATENOLOL [Concomitant]
  10. INSULIN ASPART [Concomitant]
  11. FUROSEMIDE [Concomitant]
  12. FISH OIL [Concomitant]
  13. FENOFIBRATE [Concomitant]
  14. POTASSIUM [Concomitant]
  15. GLIPIZIDE [Concomitant]
  16. NIACIN [Suspect]
     Indication: MEDICAL DIET
     Dosage: 500 MG;QD; 1000 MG;QD;
     Dates: start: 20091101, end: 20091101
  17. NIACIN [Suspect]
     Indication: MEDICAL DIET
     Dosage: 500 MG;QD; 1000 MG;QD;
     Dates: start: 20090701, end: 20091101
  18. ATORVASTATIN CALCIUM [Concomitant]
  19. FOLIC ACID [Concomitant]
  20. ASPIRIN [Concomitant]

REACTIONS (2)
  - HIGH DENSITY LIPOPROTEIN DECREASED [None]
  - INTERNATIONAL NORMALISED RATIO INCREASED [None]
